FAERS Safety Report 7215284-4 (Version None)
Quarter: 2011Q1

REPORT INFORMATION
  Report Type: 
  Country: None (occurrence: None)
  Receive Date: 20110104
  Receipt Date: 20110104
  Transmission Date: 20110831
  Serious: Yes (Other)
  Sender: FDA-Public Use
  Company Number: None

PATIENT
  Sex: Female
  Weight: 24.0406 kg

DRUGS (2)
  1. LEVETIRACETAM [Suspect]
     Indication: EPILEPSY
     Dosage: 500MG TABS - CURRENT DOSE 1000 MG BID
     Dates: start: 20101101, end: 20101202
  2. LEVETIRACETAM [Suspect]
     Indication: RETT'S DISORDER
     Dosage: 500MG TABS - CURRENT DOSE 1000 MG BID
     Dates: start: 20101101, end: 20101202

REACTIONS (2)
  - PRODUCT SUBSTITUTION ISSUE [None]
  - DRUG INEFFECTIVE [None]
